FAERS Safety Report 6129770-1 (Version None)
Quarter: 2009Q1

REPORT INFORMATION
  Report Type: 
  Country: None (occurrence: None)
  Receive Date: 20090320
  Receipt Date: 20090304
  Transmission Date: 20090719
  Serious: Yes (Hospitalization)
  Sender: FDA-Public Use
  Company Number: ALA_00264_2009

PATIENT
  Age: 50 Year
  Sex: Male

DRUGS (1)
  1. MESALAMINE [Suspect]
     Indication: CROHN'S DISEASE
     Dosage: DF
     Dates: start: 20041101, end: 20080201

REACTIONS (5)
  - ARTERIOSCLEROSIS CORONARY ARTERY [None]
  - INFLUENZA LIKE ILLNESS [None]
  - ISCHAEMIC CARDIOMYOPATHY [None]
  - MYOCARDIAL INFARCTION [None]
  - MYOCARDITIS [None]
